FAERS Safety Report 8910577 (Version 1)
Quarter: 2012Q4

REPORT INFORMATION
  Report Type: 
  Country: US (occurrence: US)
  Receive Date: 20121114
  Receipt Date: 20121114
  Transmission Date: 20130627
  Serious: Yes (Other)
  Sender: FDA-Public Use
  Company Number: US-GLAXOSMITHKLINE-A1000331A

PATIENT
  Age: 17 Year
  Sex: Male

DRUGS (3)
  1. LAMICTAL [Suspect]
     Indication: CONVULSION
     Dosage: 200MG Twice per day
     Route: 048
  2. KEPPRA [Concomitant]
  3. KLONOPIN [Concomitant]

REACTIONS (2)
  - Grand mal convulsion [Unknown]
  - Drug screen positive [Unknown]
